FAERS Safety Report 7078670-1 (Version None)
Quarter: 2010Q4

REPORT INFORMATION
  Report Type: 
  Country: None (occurrence: None)
  Receive Date: 20101101
  Receipt Date: 20101101
  Transmission Date: 20110411
  Serious: No
  Sender: FDA-Public Use
  Company Number: None

PATIENT
  Sex: Female
  Weight: 65 kg

DRUGS (1)
  1. AMOXICILLIN [Suspect]
     Indication: CYSTITIS
     Dosage: 14 TABLETS 2X/DAY
     Dates: start: 20100928, end: 20101005

REACTIONS (1)
  - DIARRHOEA [None]
